FAERS Safety Report 9996360 (Version 1)
Quarter: 2014Q1

REPORT INFORMATION
  Report Type: Spontaneous
  Country: US (occurrence: US)
  Receive Date: 20140311
  Receipt Date: 20140311
  Transmission Date: 20141002
  Serious: Yes (Hospitalization)
  Sender: FDA-Public Use
  Company Number: US-GLAXOSMITHKLINE-A1064223A

PATIENT
  Age: 60 Year
  Sex: Female

DRUGS (3)
  1. ADVAIR [Suspect]
     Indication: DYSPNOEA
     Route: 065
     Dates: start: 20091116
  2. OXYGEN [Concomitant]
  3. UNKNOWN MEDICATION [Concomitant]

REACTIONS (2)
  - Chest pain [Unknown]
  - Stress [Unknown]
